FAERS Safety Report 8286028-2 (Version None)
Quarter: 2012Q2

REPORT INFORMATION
  Report Type: 
  Country: None (occurrence: None)
  Receive Date: 20120416
  Receipt Date: 20120405
  Transmission Date: 20120825
  Serious: Yes (Hospitalization, Other)
  Sender: FDA-Public Use
  Company Number: US-BIOGENIDEC-2012BI007741

PATIENT
  Age: 53 Year
  Sex: Female

DRUGS (4)
  1. AVONEX [Suspect]
     Route: 030
     Dates: start: 20100511, end: 20120109
  2. FIORCET [Concomitant]
     Indication: HEADACHE
  3. AVONEX [Suspect]
     Indication: MULTIPLE SCLEROSIS
     Route: 030
     Dates: start: 19990201, end: 20081020
  4. AVONEX [Suspect]
     Route: 030
     Dates: start: 20090508, end: 20100125

REACTIONS (17)
  - VISUAL IMPAIRMENT [None]
  - VISION BLURRED [None]
  - NECK PAIN [None]
  - INTERVERTEBRAL DISC PROTRUSION [None]
  - PAIN [None]
  - INFLUENZA LIKE ILLNESS [None]
  - HOT FLUSH [None]
  - FALL [None]
  - THROMBOSIS [None]
  - ABASIA [None]
  - MUSCLE SPASMS [None]
  - ROAD TRAFFIC ACCIDENT [None]
  - DIARRHOEA [None]
  - MEMORY IMPAIRMENT [None]
  - STRESS [None]
  - FEMUR FRACTURE [None]
  - INSOMNIA [None]
